FAERS Safety Report 7772861-X (Version None)
Quarter: 2011Q3

REPORT INFORMATION
  Report Type: 
  Country: None (occurrence: None)
  Receive Date: 20110922
  Receipt Date: 20100917
  Transmission Date: 20111222
  Serious: Yes (Other)
  Sender: FDA-Public Use
  Company Number: US-ASTRAZENECA-2010SE37287

PATIENT
  Age: 22915 Day
  Sex: Male
  Weight: 81.6 kg

DRUGS (11)
  1. SEROQUEL XR [Suspect]
     Route: 048
     Dates: start: 20090529
  2. SEROQUEL XR [Suspect]
     Route: 048
     Dates: start: 20090529
  3. LITHOBID [Concomitant]
     Indication: AFFECTIVE DISORDER
     Route: 048
  4. DEPAKOTE ER [Concomitant]
     Indication: AFFECTIVE DISORDER
     Route: 048
  5. TRIFLUOPERAZINE HCL [Concomitant]
     Dates: start: 19700101
  6. SEROQUEL XR [Suspect]
     Indication: DEPRESSION
     Route: 048
     Dates: start: 20090201
  7. SEROQUEL XR [Suspect]
     Indication: PSYCHOTIC DISORDER
     Route: 048
     Dates: start: 20090201
  8. ARIPIPRAZOLE [Concomitant]
     Dates: start: 20080101, end: 20090201
  9. SEROQUEL XR [Suspect]
     Indication: BIPOLAR DISORDER
     Route: 048
     Dates: start: 20090201
  10. TRAZODONE HYDROCHLORIDE [Concomitant]
     Indication: SLEEP DISORDER
     Route: 048
  11. SEROQUEL XR [Suspect]
     Route: 048
     Dates: start: 20090529

REACTIONS (1)
  - TARDIVE DYSKINESIA [None]
